FAERS Safety Report 8201061-4 (Version None)
Quarter: 2012Q1

REPORT INFORMATION
  Report Type: 
  Country: None (occurrence: None)
  Receive Date: 20120312
  Receipt Date: 20111216
  Transmission Date: 20120608
  Serious: No
  Sender: FDA-Public Use
  Company Number: US-ABBOTT-11P-163-0884076-00

PATIENT
  Sex: Female
  Weight: 67.646 kg

DRUGS (3)
  1. LUPRON DEPOT [Suspect]
     Indication: ENDOMETRIOSIS
     Dates: start: 20110908
  2. MOTRIN [Concomitant]
     Indication: ENDOMETRIOSIS
  3. VICODIN [Concomitant]
     Indication: ENDOMETRIOSIS

REACTIONS (3)
  - MENSTRUAL DISORDER [None]
  - UNEVALUABLE EVENT [None]
  - PAIN [None]
